FAERS Safety Report 7000616-2 (Version None)
Quarter: 2010Q3

REPORT INFORMATION
  Report Type: 
  Country: None (occurrence: None)
  Receive Date: 20100920
  Receipt Date: 20100909
  Transmission Date: 20110219
  Serious: Yes (Hospitalization)
  Sender: FDA-Public Use
  Company Number: UA-JNJFOC-20100903561

PATIENT
  Age: 24 Year
  Sex: Male

DRUGS (3)
  1. RISPOLEPT CONSTA [Suspect]
     Indication: SCHIZOPHRENIA
     Route: 030
  2. AMINAZINE [Concomitant]
     Indication: SCHIZOPHRENIA
     Route: 065
  3. HALOPERIDOL [Concomitant]
     Indication: SCHIZOPHRENIA
     Route: 030

REACTIONS (2)
  - HEPATITIS TOXIC [None]
  - PETECHIAE [None]
